FAERS Safety Report 4351965-8 (Version None)
Quarter: 2004Q2

REPORT INFORMATION
  Report Type: 
  Country: None (occurrence: None)
  Receive Date: 20040429
  Receipt Date: 20040129
  Transmission Date: 20050107
  Serious: No
  Sender: FDA-Public Use
  Company Number: 2004-112893-NL

PATIENT
  Age: 40 Year
  Sex: Female
  Weight: 65.9 kg

DRUGS (5)
  1. NUVARING [Suspect]
     Indication: CONTRACEPTION
     Dosage: DF DAILY VAGINAL
     Route: 067
     Dates: start: 20040121
  2. PROTONIX [Concomitant]
  3. PAXIL [Concomitant]
  4. SYNTHROID [Concomitant]
  5. CARAFATE [Concomitant]

REACTIONS (3)
  - DIARRHOEA [None]
  - NAUSEA [None]
  - VOMITING [None]
